FAERS Safety Report 10236399 (Version 1)
Quarter: 2014Q2

REPORT INFORMATION
  Report Type: Spontaneous
  Country: IN (occurrence: IN)
  Receive Date: 20140613
  Receipt Date: 20140613
  Transmission Date: 20141212
  Serious: Yes (Hospitalization, Other)
  Sender: FDA-Public Use
  Company Number: PHHY2014IN072623

PATIENT
  Age: 23 Year
  Sex: Female

DRUGS (3)
  1. CLOZAPINE [Suspect]
     Dosage: 100 MG, 20 EACH
  2. CLONAZEPAM [Suspect]
     Dosage: 0.25 MG, 20 EACH
  3. FOLIC ACID [Suspect]
     Dosage: 5 MG, 20 EACH

REACTIONS (20)
  - Toxicity to various agents [Recovering/Resolving]
  - Loss of consciousness [Recovering/Resolving]
  - Unresponsive to stimuli [Recovering/Resolving]
  - Hypotension [Recovering/Resolving]
  - Miosis [Recovering/Resolving]
  - Electrocardiogram QT prolonged [Recovering/Resolving]
  - Electrocardiogram ST segment depression [Recovering/Resolving]
  - Electrocardiogram T wave amplitude decreased [Recovering/Resolving]
  - Tachycardia [Recovering/Resolving]
  - Respiratory depression [Recovering/Resolving]
  - Coma [Recovering/Resolving]
  - Sensory disturbance [Recovering/Resolving]
  - Disorientation [Recovering/Resolving]
  - Mood altered [Recovering/Resolving]
  - Somnolence [Recovering/Resolving]
  - Delirium [Recovering/Resolving]
  - Slow response to stimuli [Recovering/Resolving]
  - Movement disorder [Recovering/Resolving]
  - Suicide attempt [Unknown]
  - Overdose [Unknown]
